FAERS Safety Report 6334453-9 (Version None)
Quarter: 2009Q3

REPORT INFORMATION
  Report Type: 
  Country: None (occurrence: None)
  Receive Date: 20090831
  Receipt Date: 20080619
  Transmission Date: 20100115
  Serious: Yes (Life-Threatening, Hospitalization, Other)
  Sender: FDA-Public Use
  Company Number: US-ASTRAZENECA-2006UW14368

PATIENT
  Age: 47 Year
  Sex: Male
  Weight: 94.3 kg

DRUGS (51)
  1. SEROQUEL [Suspect]
     Indication: SCHIZOPHRENIA
     Dosage: 25-50 MG HS PLUS 25 MG BID PRN
     Route: 048
     Dates: start: 20041206
  2. SEROQUEL [Suspect]
     Indication: BIPOLAR I DISORDER
     Dosage: 25-50 MG HS PLUS 25 MG BID PRN
     Route: 048
     Dates: start: 20041206
  3. SEROQUEL [Suspect]
     Indication: POST-TRAUMATIC STRESS DISORDER
     Dosage: 25-50 MG HS PLUS 25 MG BID PRN
     Route: 048
     Dates: start: 20041206
  4. SEROQUEL [Suspect]
     Indication: AGITATION
     Dosage: 25-50 MG HS PLUS 25 MG BID PRN
     Route: 048
     Dates: start: 20041206
  5. SEROQUEL [Suspect]
     Indication: ANXIETY
     Dosage: 25-50 MG HS PLUS 25 MG BID PRN
     Route: 048
     Dates: start: 20041206
  6. SEROQUEL [Suspect]
     Indication: AFFECTIVE DISORDER
     Dosage: 25-50 MG HS PLUS 25 MG BID PRN
     Route: 048
     Dates: start: 20041206
  7. SEROQUEL [Suspect]
     Dosage: 25 TO 75 MG
     Route: 048
     Dates: start: 20041206, end: 20051215
  8. SEROQUEL [Suspect]
     Dosage: 25 TO 75 MG
     Route: 048
     Dates: start: 20041206, end: 20051215
  9. SEROQUEL [Suspect]
     Dosage: 25 TO 75 MG
     Route: 048
     Dates: start: 20041206, end: 20051215
  10. SEROQUEL [Suspect]
     Dosage: 25 TO 75 MG
     Route: 048
     Dates: start: 20041206, end: 20051215
  11. SEROQUEL [Suspect]
     Dosage: 25 TO 75 MG
     Route: 048
     Dates: start: 20041206, end: 20051215
  12. SEROQUEL [Suspect]
     Dosage: 25 TO 75 MG
     Route: 048
     Dates: start: 20041206, end: 20051215
  13. SEROQUEL [Suspect]
     Route: 048
     Dates: start: 20051103, end: 20051215
  14. SEROQUEL [Suspect]
     Route: 048
     Dates: start: 20051103, end: 20051215
  15. SEROQUEL [Suspect]
     Route: 048
     Dates: start: 20051103, end: 20051215
  16. SEROQUEL [Suspect]
     Route: 048
     Dates: start: 20051103, end: 20051215
  17. SEROQUEL [Suspect]
     Route: 048
     Dates: start: 20051103, end: 20051215
  18. SEROQUEL [Suspect]
     Route: 048
     Dates: start: 20051103, end: 20051215
  19. SERTRALINE HCL [Concomitant]
     Indication: DEPRESSION
     Dates: start: 19991025, end: 20030611
  20. SERTRALINE HCL [Concomitant]
     Dates: start: 20001120
  21. SERTRALINE HCL [Concomitant]
     Dates: start: 20020829
  22. LORAZEPAM [Concomitant]
     Indication: ANXIETY
     Dosage: Q4 HRS PRN
     Dates: start: 19991025
  23. LORAZEPAM [Concomitant]
     Indication: AGITATION
     Dosage: Q4 HRS PRN
     Dates: start: 19991025
  24. LORAZEPAM [Concomitant]
     Dosage: 1 TO 2 MG
     Dates: start: 20001120
  25. LORAZEPAM [Concomitant]
     Dosage: 1 TO 2 MG
     Dates: start: 20001120
  26. LORAZEPAM [Concomitant]
     Dates: start: 20020829
  27. LORAZEPAM [Concomitant]
     Dates: start: 20020829
  28. TRAZODONE HCL [Concomitant]
     Indication: DEPRESSION
     Dates: start: 19991025
  29. TRAZODONE HCL [Concomitant]
     Dates: start: 20001120
  30. TRAZODONE HCL [Concomitant]
     Dates: start: 20020829
  31. HYDROCODONE [Concomitant]
  32. ZETIA [Concomitant]
     Route: 048
  33. FEXOFENADINE HCL [Concomitant]
     Route: 048
  34. HYDROCHLOROTHIAZIDE [Concomitant]
     Route: 048
  35. MULTI-VITAMIN [Concomitant]
  36. PAROXETIENE HCL [Concomitant]
     Route: 048
     Dates: start: 20030725
  37. PRAVASTATIN SODIUM [Concomitant]
     Route: 048
  38. RANITIDINE HCL [Concomitant]
     Route: 048
  39. HALDOL [Concomitant]
     Dosage: 5 MG EVERY THREE HOURS
     Dates: start: 20051018, end: 20051028
  40. RISPERDAL [Concomitant]
     Dates: start: 20051003, end: 20051103
  41. BUPROPION HCL [Concomitant]
     Dates: start: 20021002, end: 20021018
  42. MIRTAZAPINE [Concomitant]
  43. FLUOXETINE [Concomitant]
  44. SERZONE [Concomitant]
  45. HYDROCODONE BITARTRATE + ACETAMINOPHEN [Concomitant]
     Dosage: ONE TO TWO TABLETS BY MOUTH FOUR TIMES A DAY
     Dates: start: 20051017
  46. INSULIN [Concomitant]
     Indication: DIABETES MELLITUS
     Dosage: 70/30 15 UNITS SUBCUTANEOUSLY TWICE A DAY
     Dates: start: 20051016
  47. PREVACID [Concomitant]
     Dates: start: 20051018
  48. POTASSIUM CHLORIDE [Concomitant]
     Dates: start: 20051017
  49. MAGNESIUM OXIDE [Concomitant]
     Indication: HYPOMAGNESAEMIA
     Dates: start: 20051017
  50. METHADONE [Concomitant]
     Indication: PAIN
     Dosage: 5 MG ONE HALF TABLET EVERY EIGHT HOURS
     Dates: start: 20051017
  51. THIAMINE HCL [Concomitant]
     Dates: start: 20051016

REACTIONS (33)
  - BLOOD CREATININE INCREASED [None]
  - BLOOD GLUCOSE INCREASED [None]
  - BLOOD POTASSIUM DECREASED [None]
  - DELIRIUM [None]
  - DEMENTIA [None]
  - DIABETIC HYPEROSMOLAR COMA [None]
  - ELECTROLYTE IMBALANCE [None]
  - ENCEPHALOPATHY [None]
  - HYPERCHOLESTEROLAEMIA [None]
  - HYPERGLYCAEMIA [None]
  - HYPERLIPIDAEMIA [None]
  - HYPOMAGNESAEMIA [None]
  - HYPONATRAEMIA [None]
  - INSULIN-REQUIRING TYPE 2 DIABETES MELLITUS [None]
  - ISCHAEMIA [None]
  - METABOLIC ACIDOSIS [None]
  - MULTI-ORGAN FAILURE [None]
  - NAUSEA [None]
  - PANCREATITIS [None]
  - PANCREATITIS ACUTE [None]
  - PELVIC FLUID COLLECTION [None]
  - PERICARDITIS [None]
  - PERITONEAL EFFUSION [None]
  - PLEURAL EFFUSION [None]
  - PNEUMONIA [None]
  - PULMONARY OEDEMA [None]
  - PYREXIA [None]
  - RENAL DISORDER [None]
  - RENAL FAILURE ACUTE [None]
  - RENAL TUBULAR NECROSIS [None]
  - RESPIRATORY FAILURE [None]
  - TYPE 2 DIABETES MELLITUS [None]
  - VOMITING [None]
